FAERS Safety Report 9269526 (Version 1)
Quarter: 2013Q2

REPORT INFORMATION
  Report Type: Spontaneous
  Country: AR (occurrence: AR)
  Receive Date: 20130503
  Receipt Date: 20130503
  Transmission Date: 20140414
  Serious: Yes (Hospitalization)
  Sender: FDA-Public Use
  Company Number: AR-PFIZER INC-2013134506

PATIENT
  Sex: Female

DRUGS (1)
  1. SUTENT [Suspect]
     Indication: METASTATIC RENAL CELL CARCINOMA
     Dosage: 50 MG, 1X/DAY

REACTIONS (5)
  - Asthenia [Unknown]
  - Syncope [Unknown]
  - Groin pain [Unknown]
  - Disease progression [Unknown]
  - Metastatic renal cell carcinoma [Unknown]
